FAERS Safety Report 8196178-7 (Version None)
Quarter: 2012Q1

REPORT INFORMATION
  Report Type: 
  Country: None (occurrence: None)
  Receive Date: 20120223
  Receipt Date: 20110526
  Transmission Date: 20120608
  Serious: Yes (Hospitalization)
  Sender: FDA-Public Use
  Company Number: WAES 1105USA04227

PATIENT
  Age: 75 Year
  Sex: Female

DRUGS (9)
  1. ACCUPRIL [Concomitant]
  2. RANEXA [Suspect]
     Indication: ANGINA PECTORIS
     Dosage: 500 MG/BID
     Dates: start: 20110328
  3. DYAZIDE [Concomitant]
  4. ZETIA [Concomitant]
  5. METOPROLOL SUCCINATE [Concomitant]
  6. ZANTAC [Concomitant]
  7. ZOCOR [Suspect]
     Indication: HYPERLIPIDAEMIA
     Dosage: 80 MG/HS/PO
     Route: 048
     Dates: start: 20000101, end: 20110424
  8. NORVASC [Concomitant]
  9. ASPIRIN [Concomitant]

REACTIONS (1)
  - RHABDOMYOLYSIS [None]
